FAERS Safety Report 10120206 (Version 2)
Quarter: 2014Q2

REPORT INFORMATION
  Report Type: Spontaneous
  Country: US (occurrence: US)
  Receive Date: 20140425
  Receipt Date: 20140425
  Transmission Date: 20141212
  Serious: No
  Sender: FDA-Public Use
  Company Number: US-PFIZER INC-2014111753

PATIENT
  Age: 43 Year
  Sex: Male

DRUGS (9)
  1. ZOLOFT [Suspect]
     Dosage: 100 MG, 1X/DAY (QD)
     Dates: start: 20130501, end: 20130709
  2. ZOLOFT [Suspect]
     Dosage: 200 MG, 1X/DAY (2QD)
     Dates: start: 20130710, end: 20130808
  3. TRAZODONE [Concomitant]
     Dosage: 400 MG, 1X/DAY (BEDTIME)
  4. TRAMADOL [Concomitant]
     Indication: PAIN
     Dosage: UNK
  5. NAPROXEN [Concomitant]
     Dosage: UNK
  6. CYCLOPANE [Concomitant]
     Dosage: UNK
  7. IBUPROFEN [Concomitant]
     Dosage: UNK
  8. PRISTIQ [Concomitant]
     Dosage: 100 MG, 1X/DAY
     Route: 048
  9. RISPERDAL [Concomitant]
     Dosage: 4 MG, 1X/DAY (HS)

REACTIONS (3)
  - Somnolence [Recovered/Resolved]
  - Insomnia [Recovered/Resolved]
  - Drug ineffective [Unknown]
